FAERS Safety Report 24030830 (Version 2)
Quarter: 2024Q3

REPORT INFORMATION
  Report Type: Report from Study
  Country: DE (occurrence: None)
  Receive Date: 20240628
  Receipt Date: 20240816
  Transmission Date: 20241017
  Serious: Yes (Hospitalization, Other)
  Sender: ASTRAZENECA
  Company Number: 2023A120006

PATIENT
  Age: 74 Year
  Sex: Female
  Weight: 96 kg

DRUGS (1)
  1. BUDESONIDE\FORMOTEROL\GLYCOPYRRONIUM [Suspect]
     Active Substance: BUDESONIDE\FORMOTEROL\GLYCOPYRRONIUM
     Indication: Chronic obstructive pulmonary disease
     Dosage: BID
     Route: 055
     Dates: start: 20221111

REACTIONS (1)
  - General symptom [Recovered/Resolved]

NARRATIVE: CASE EVENT DATE: 20230517
